FAERS Safety Report 6919214-1 (Version None)
Quarter: 2010Q3

REPORT INFORMATION
  Report Type: 
  Country: None (occurrence: None)
  Receive Date: 20100811
  Receipt Date: 20100803
  Transmission Date: 20110219
  Serious: Yes (Other)
  Sender: FDA-Public Use
  Company Number: CZ-BAXTER-2010BH020843

PATIENT
  Age: 65 Year
  Sex: Female

DRUGS (3)
  1. GAMMAGARD LIQUID [Suspect]
     Indication: IMMUNODEFICIENCY
     Route: 042
     Dates: start: 20100803, end: 20100803
  2. NEUPOGEN [Concomitant]
  3. OFLOXIN [Concomitant]

REACTIONS (5)
  - DYSPNOEA [None]
  - HYPERTENSION [None]
  - LUNG DISORDER [None]
  - OXYGEN SATURATION DECREASED [None]
  - TACHYCARDIA [None]
